FAERS Safety Report 13221771 (Version 2)
Quarter: 2017Q1

REPORT INFORMATION
  Report Type: Other
  Country: US (occurrence: US)
  Receive Date: 20170211
  Receipt Date: 20170211
  Transmission Date: 20170428
  Serious: No
  Sender: FDA-Public Use
  Company Number: US-ACORDA-ACO_131647_2016

PATIENT
  Sex: Male

DRUGS (2)
  1. AMPYRA [Suspect]
     Active Substance: DALFAMPRIDINE
     Dosage: 10 MG, Q 12 HRS
     Dates: start: 2016, end: 201701
  2. AMPYRA [Suspect]
     Active Substance: DALFAMPRIDINE
     Indication: PRODUCT USED FOR UNKNOWN INDICATION
     Dosage: 10 MG, Q 12 HRS
     Route: 048
     Dates: start: 201606, end: 2016

REACTIONS (8)
  - Therapy cessation [Unknown]
  - Muscle spasms [Unknown]
  - Anxiety [Unknown]
  - Balance disorder [Unknown]
  - Aphasia [Unknown]
  - Disturbance in attention [Unknown]
  - Drug ineffective [Unknown]
  - Dysgraphia [Unknown]
